FAERS Safety Report 25231961 (Version 1)
Quarter: 2025Q2

REPORT INFORMATION
  Report Type: Spontaneous
  Country: FR (occurrence: FR)
  Receive Date: 20250423
  Receipt Date: 20250423
  Transmission Date: 20250717
  Serious: Yes (Other)
  Sender: MYLAN
  Company Number: None

PATIENT
  Age: 28 Year
  Sex: Male
  Weight: 74 kg

DRUGS (8)
  1. METHYLPHENIDATE [Suspect]
     Active Substance: METHYLPHENIDATE
     Indication: Autism spectrum disorder
     Dosage: 40 MILLIGRAM, QD
     Dates: start: 20240327
  2. RISPERIDONE [Suspect]
     Active Substance: RISPERIDONE
     Indication: Autism spectrum disorder
     Dosage: 4 MILLIGRAM, QD
  3. VALPROATE [Suspect]
     Active Substance: VALPROIC ACID
     Indication: Autism spectrum disorder
     Dosage: 1500 MILLIGRAM, QD
  4. DIAZEPAM [Suspect]
     Active Substance: DIAZEPAM
     Indication: Autism spectrum disorder
     Dosage: 30 MILLIGRAM, QD
  5. TRIMEPRAZINE [Suspect]
     Active Substance: TRIMEPRAZINE
     Indication: Autism spectrum disorder
     Dosage: 40 MILLIGRAM, QD
  6. LOXAPINE SUCCINATE [Suspect]
     Active Substance: LOXAPINE SUCCINATE
     Indication: Autism spectrum disorder
     Dosage: 200 MILLIGRAM, QD
  7. MELATONIN [Suspect]
     Active Substance: MELATONIN
     Indication: Autism spectrum disorder
     Dosage: 1.9 MILLIGRAM, QD
     Dates: start: 20240325
  8. TRIHEXYPHENIDYL HYDROCHLORIDE [Suspect]
     Active Substance: TRIHEXYPHENIDYL HYDROCHLORIDE
     Indication: Autism spectrum disorder
     Dosage: 5 MILLIGRAM, QD
     Dates: start: 20240326

REACTIONS (2)
  - Neutropenia [Not Recovered/Not Resolved]
  - Platelet count decreased [Not Recovered/Not Resolved]

NARRATIVE: CASE EVENT DATE: 20250325
